FAERS Safety Report 21359262 (Version 2)
Quarter: 2022Q4

REPORT INFORMATION
  Report Type: Report from Study
  Country: FR (occurrence: None)
  Receive Date: 20220921
  Receipt Date: 20221101
  Transmission Date: 20230113
  Serious: Yes (Death)
  Sender: FDA-Public Use
  Company Number: 2022A321631

PATIENT
  Sex: Female
  Weight: 69 kg

DRUGS (1)
  1. EVUSHELD [Suspect]
     Active Substance: CILGAVIMAB\TIXAGEVIMAB
     Indication: COVID-19 prophylaxis
     Dosage: ONCE/SINGLE ADMINISTRATION
     Route: 030
     Dates: start: 20220126, end: 20220126

REACTIONS (3)
  - Acute pulmonary oedema [Fatal]
  - Multiple organ dysfunction syndrome [Fatal]
  - End stage renal disease [Fatal]
